FAERS Safety Report 4612914-8 (Version None)
Quarter: 2005Q1

REPORT INFORMATION
  Report Type: 
  Country: None (occurrence: None)
  Receive Date: 20050318
  Receipt Date: 20050316
  Transmission Date: 20050727
  Serious: Yes (Other)
  Sender: FDA-Public Use
  Company Number: FR-GLAXOSMITHKLINE-B0374944A

PATIENT
  Age: 82 Year
  Sex: Female

DRUGS (7)
  1. AUGMENTIN '125' [Suspect]
     Indication: ANTIBACTERIAL PROPHYLAXIS
     Dosage: 1G TWICE PER DAY
     Route: 048
     Dates: start: 20050314, end: 20050315
  2. SINTROM [Concomitant]
  3. ELISOR [Concomitant]
  4. OMEPRAZOLE [Concomitant]
  5. PRAXILENE [Concomitant]
  6. TANGANIL [Concomitant]
     Indication: DIZZINESS
  7. SERESTA [Concomitant]

REACTIONS (1)
  - HALLUCINATION [None]
